FAERS Safety Report 4314765-0 (Version None)
Quarter: 2004Q1

REPORT INFORMATION
  Report Type: 
  Country: None (occurrence: None)
  Receive Date: 20040308
  Receipt Date: 20040227
  Transmission Date: 20041129
  Serious: Yes (Hospitalization)
  Sender: FDA-Public Use
  Company Number: 2004EU000357

PATIENT
  Age: 67 Year
  Sex: Male

DRUGS (7)
  1. FK506 (TACROLIMUS)CAPSULE [Suspect]
     Indication: LUNG TRANSPLANT
     Dosage: 0.50 MG, ORAL
     Route: 048
     Dates: start: 20010627, end: 20021216
  2. VORICONAZOLE (VORICONAZOLE) [Concomitant]
  3. SPORANOX [Concomitant]
  4. MYCOPHENOLATE MOFETIL (MYCOPHENOLATE MOFETIL) [Concomitant]
  5. PREDNISONE [Concomitant]
  6. INSULIN ILETIN I NPH (INSULIN INJECTION, ISOPHANE) [Concomitant]
  7. SEPTRIN FORTE (SULFAMETHOXAZOLE , TRIMETHOPRIM) [Concomitant]

REACTIONS (6)
  - BRONCHOPULMONARY ASPERGILLOSIS [None]
  - CATARACT [None]
  - LUNG INFECTION [None]
  - OPTIC NEURITIS [None]
  - PSEUDOMONAS INFECTION [None]
  - VISUAL ACUITY REDUCED [None]
